FAERS Safety Report 7407200-7 (Version None)
Quarter: 2011Q2

REPORT INFORMATION
  Report Type: 
  Country: None (occurrence: None)
  Receive Date: 20110411
  Receipt Date: 20110404
  Transmission Date: 20111010
  Serious: Yes (Hospitalization)
  Sender: FDA-Public Use
  Company Number: US-B.I. PHARMACEUTICALS,INC./RIDGEFIELD-2011-BP-09283BP

PATIENT
  Sex: Male

DRUGS (9)
  1. PLAVIX [Concomitant]
     Indication: CARDIAC DISORDER
     Dosage: 75 MG
  2. LASIX [Suspect]
     Indication: FLUID RETENTION
     Dosage: 20 MG
  3. POTASSIUM CHLORIDE [Concomitant]
     Indication: SUPPLEMENTATION THERAPY
  4. LEVOTHYROXINE [Concomitant]
     Indication: THYROID DISORDER
  5. MICARDIS [Suspect]
     Indication: HYPERTENSION
     Dosage: 80 MG
     Route: 048
     Dates: start: 20110201
  6. FAMOTIDINE [Concomitant]
     Dosage: 40 MG
  7. CELEBREX [Concomitant]
     Indication: ARTHRITIS
     Dosage: 200 MG
  8. CARVEDILOL [Suspect]
     Dosage: 25 MG
  9. LIPITOR [Concomitant]
     Indication: BLOOD CHOLESTEROL INCREASED
     Dosage: 40 MG

REACTIONS (1)
  - LOSS OF CONSCIOUSNESS [None]
